FAERS Safety Report 5432761-7 (Version None)
Quarter: 2007Q3

REPORT INFORMATION
  Report Type: 
  Country: None (occurrence: None)
  Receive Date: 20070831
  Receipt Date: 20070827
  Transmission Date: 20080115
  Serious: Yes (Death, Hospitalization)
  Sender: FDA-Public Use
  Company Number: FR-JNJFOC-20070805467

PATIENT
  Age: 65 Year
  Sex: Male

DRUGS (18)
  1. TAVANIC [Suspect]
     Indication: LUNG DISORDER
     Route: 042
  2. TAZOCILLINE [Suspect]
     Indication: LUNG DISORDER
     Route: 042
  3. TRIFLUCAN [Suspect]
     Indication: LUNG DISORDER
     Route: 042
  4. PENTASA [Concomitant]
     Route: 048
  5. CORTANCYL [Concomitant]
     Route: 048
  6. FEROGRAD [Concomitant]
     Route: 048
  7. CERNEVIT-12 [Concomitant]
     Route: 042
  8. SOLU-MEDROL [Concomitant]
     Route: 042
  9. LOVENOX [Concomitant]
     Route: 058
  10. OMEPRAZOLE [Concomitant]
     Route: 065
  11. PERFALGAN [Concomitant]
     Route: 042
  12. MORPHINE [Concomitant]
     Route: 065
  13. HYDROCORTISONE [Concomitant]
     Route: 065
  14. DIPRIVAN [Concomitant]
     Route: 065
  15. SUFENTA [Concomitant]
     Route: 065
  16. FLAGYL [Concomitant]
     Route: 065
  17. ZYVOX [Concomitant]
     Route: 065
  18. CALCIPARINE [Concomitant]
     Route: 065

REACTIONS (3)
  - CARDIO-RESPIRATORY ARREST [None]
  - SEPTIC SHOCK [None]
  - THROMBOCYTOPENIA [None]
